FAERS Safety Report 8008268-X (Version None)
Quarter: 2011Q4

REPORT INFORMATION
  Report Type: 
  Country: None (occurrence: None)
  Receive Date: 20111227
  Receipt Date: 20111219
  Transmission Date: 20120403
  Serious: No
  Sender: FDA-Public Use
  Company Number: DE-ALEXION-A201100876

PATIENT
  Sex: Female
  Weight: 66 kg

DRUGS (5)
  1. CLONIDINE [Concomitant]
     Indication: HYPERTENSION
     Route: 058
  2. BAYOTENSIN AKUT [Concomitant]
     Indication: HYPERTENSION
  3. SOLIRIS [Suspect]
     Indication: HAEMOLYTIC URAEMIC SYNDROME
     Dosage: 900 MG UNK
     Route: 042
     Dates: start: 20110531, end: 20110614
  4. NOVALGINE [Concomitant]
  5. METOCLOPRAMIDE [Concomitant]

REACTIONS (2)
  - HEADACHE [None]
  - NAUSEA [None]
